FAERS Safety Report 4595966-3 (Version None)
Quarter: 2005Q1

REPORT INFORMATION
  Report Type: 
  Country: None (occurrence: None)
  Receive Date: 20050224
  Receipt Date: 20050207
  Transmission Date: 20050727
  Serious: Yes (Hospitalization)
  Sender: FDA-Public Use
  Company Number: B0370578A

PATIENT
  Age: 52 Year
  Sex: Male

DRUGS (3)
  1. EPIVIR [Suspect]
     Indication: HIV INFECTION
  2. RETROVIR [Suspect]
     Indication: HIV INFECTION
  3. LOPINAVIR+RITONAVIR (LOPINAVIR+RITONAVIR) [Suspect]
     Indication: HIV INFECTION

REACTIONS (3)
  - HYPERREFLEXIA [None]
  - IMMUNE RECONSTITUTION SYNDROME [None]
  - POLYMYOSITIS [None]
